FAERS Safety Report 5466760-6 (Version None)
Quarter: 2007Q3

REPORT INFORMATION
  Report Type: 
  Country: None (occurrence: None)
  Receive Date: 20070925
  Receipt Date: 20070911
  Transmission Date: 20080115
  Serious: Yes (Hospitalization)
  Sender: FDA-Public Use
  Company Number: JP-ELI_LILLY_AND_COMPANY-JP200703002754

PATIENT
  Age: 51 Year
  Sex: Female
  Weight: 81.25 kg

DRUGS (8)
  1. PEROSPIRONE HYDROCHLORIDE [Concomitant]
     Indication: SCHIZOPHRENIA, UNDIFFERENTIATED TYPE
     Dosage: 12 MG, DAILY (1/D)
     Route: 048
     Dates: start: 20040401
  2. RISPERIDONE [Concomitant]
     Indication: SCHIZOPHRENIA, UNDIFFERENTIATED TYPE
     Dosage: 3 MG, DAILY (1/D)
     Route: 048
     Dates: start: 20040601
  3. QUETIAPINE FUMARATE [Concomitant]
     Indication: SCHIZOPHRENIA, UNDIFFERENTIATED TYPE
     Dosage: 800 MG, DAILY (1/D)
     Route: 048
     Dates: start: 20040601
  4. ZYPREXA [Suspect]
     Indication: SCHIZOPHRENIA, UNDIFFERENTIATED TYPE
     Dosage: 15 MG, DAILY (1/D)
     Route: 048
     Dates: start: 20061004, end: 20061001
  5. ZYPREXA [Suspect]
     Dosage: 10 MG, DAILY (1/D)
     Route: 048
     Dates: start: 20061001, end: 20060101
  6. ZYPREXA [Suspect]
     Dosage: 5 MG, DAILY (1/D)
     Route: 048
     Dates: start: 20060101, end: 20061106
  7. ZYPREXA [Suspect]
     Dosage: UNK, UNK
     Route: 048
     Dates: start: 20030101, end: 20040401
  8. ZYPREXA [Suspect]
     Dosage: 20 MG, DAILY (1/D)
     Route: 048
     Dates: start: 20040902, end: 20061003

REACTIONS (9)
  - ALCOHOLISM [None]
  - DELUSION [None]
  - HYPERPROLACTINAEMIA [None]
  - INCREASED APPETITE [None]
  - IRRITABILITY [None]
  - METABOLIC SYNDROME [None]
  - POLYDIPSIA [None]
  - SLEEP DISORDER [None]
  - WEIGHT INCREASED [None]
